FAERS Safety Report 19849847 (Version 1)
Quarter: 2021Q3

REPORT INFORMATION
  Report Type: Spontaneous
  Country: GB (occurrence: GB)
  Receive Date: 20210917
  Receipt Date: 20210917
  Transmission Date: 20211014
  Serious: Yes (Other)
  Sender: FDA-Public Use
  Company Number: GB-MYLANLABS-2021M1062797

PATIENT
  Age: 42 Year
  Sex: Male

DRUGS (3)
  1. NUROFEN PLUS [Suspect]
     Active Substance: CODEINE PHOSPHATE\IBUPROFEN
     Indication: PRODUCT USED FOR UNKNOWN INDICATION
     Dosage: 32 DOSAGE FORM, QD
     Route: 065
     Dates: start: 2019
  2. TRAMADOL. [Suspect]
     Active Substance: TRAMADOL
     Dosage: 8 DOSAGE FORM, QD
     Route: 065
  3. TRAMADOL. [Suspect]
     Active Substance: TRAMADOL
     Indication: PRODUCT USED FOR UNKNOWN INDICATION
     Dosage: 40 DOSAGE FORM, QD
     Route: 065
     Dates: start: 2019

REACTIONS (4)
  - Drug dependence [Unknown]
  - Intentional overdose [Unknown]
  - Withdrawal syndrome [Unknown]
  - Ulcer [Unknown]
